FAERS Safety Report 7486651-9 (Version None)
Quarter: 2011Q2

REPORT INFORMATION
  Report Type: 
  Country: None (occurrence: None)
  Receive Date: 20110517
  Receipt Date: 20110505
  Transmission Date: 20111010
  Serious: Yes (Disabling)
  Sender: FDA-Public Use
  Company Number: TR-ELI_LILLY_AND_COMPANY-TR201105002104

PATIENT
  Age: 75 Year
  Sex: Female

DRUGS (1)
  1. FORTEO [Suspect]
     Dosage: 20 UG, UNKNOWN
     Route: 065
     Dates: start: 20110225

REACTIONS (6)
  - PAIN [None]
  - NAUSEA [None]
  - INSOMNIA [None]
  - ARTHRALGIA [None]
  - MOBILITY DECREASED [None]
  - VOMITING [None]
